FAERS Safety Report 24203673 (Version 1)
Quarter: 2024Q3

REPORT INFORMATION
  Report Type: Report from Study
  Country: US (occurrence: US)
  Receive Date: 20240813
  Receipt Date: 20240813
  Transmission Date: 20241017
  Serious: No
  Sender: ROCHE
  Company Number: US-ROCHE-10000054236

PATIENT
  Age: 58 Year
  Sex: Female
  Weight: 99.79 kg

DRUGS (4)
  1. OCREVUS [Suspect]
     Active Substance: OCRELIZUMAB
     Indication: Relapsing multiple sclerosis
     Dosage: THEN 600 MG EVERY 6 MONTH
     Route: 042
     Dates: start: 2022
  2. TOPAMAX [Concomitant]
     Active Substance: TOPIRAMATE
     Dosage: AT BEDTIME
     Route: 048
  3. BACLOFEN [Concomitant]
     Active Substance: BACLOFEN
  4. DIMETHYL FUMARATE [Concomitant]
     Active Substance: DIMETHYL FUMARATE

REACTIONS (2)
  - Herpes zoster [Recovered/Resolved]
  - Breast pain [Unknown]

NARRATIVE: CASE EVENT DATE: 20240401
